FAERS Safety Report 6244679-0 (Version None)
Quarter: 2009Q2

REPORT INFORMATION
  Report Type: 
  Country: None (occurrence: None)
  Receive Date: 20090619
  Receipt Date: 20090430
  Transmission Date: 20091009
  Serious: No
  Sender: FDA-Public Use
  Company Number: ALL1-2009-01212

PATIENT
  Age: 8 Year
  Sex: Female
  Weight: 27.7 kg

DRUGS (8)
  1. VYVANSE [Suspect]
     Indication: ATTENTION DEFICIT/HYPERACTIVITY DISORDER
     Dosage: 50 MG, 1X/DAY:QD, ORAL ; 70 MG, 1X/DAY:QD, ORAL
     Route: 048
     Dates: start: 20080601, end: 20080701
  2. VYVANSE [Suspect]
     Indication: ATTENTION DEFICIT/HYPERACTIVITY DISORDER
     Dosage: 50 MG, 1X/DAY:QD, ORAL ; 70 MG, 1X/DAY:QD, ORAL
     Route: 048
     Dates: start: 20080701
  3. ALBUTEROL HFA (SALBUTAMOL) [Concomitant]
  4. NASONEX [Concomitant]
  5. CLONIDINE [Concomitant]
  6. PULMICORT [Concomitant]
  7. ALBUTEROL /00139501/ (SALBUTAMOL) [Concomitant]
  8. OMEGA 3 FISH OIL (FISH OIL) [Concomitant]

REACTIONS (4)
  - BRUXISM [None]
  - RASH [None]
  - SKIN EXFOLIATION [None]
  - SLEEP DISORDER [None]
